FAERS Safety Report 5310799-8 (Version None)
Quarter: 2007Q2

REPORT INFORMATION
  Report Type: 
  Country: None (occurrence: None)
  Receive Date: 20070428
  Receipt Date: 20070417
  Transmission Date: 20071010
  Serious: Yes (Other)
  Sender: FDA-Public Use
  Company Number: US-PFIZER INC-2007015397

PATIENT
  Sex: Female
  Weight: 132 kg

DRUGS (7)
  1. CHANTIX [Suspect]
     Indication: SMOKING CESSATION THERAPY
     Route: 048
     Dates: start: 20070131, end: 20070218
  2. CHANTIX [Suspect]
  3. INDERAL [Concomitant]
  4. SYNTHROID [Concomitant]
  5. METFORMIN HCL [Concomitant]
  6. FLONASE [Concomitant]
  7. MEVACOR [Concomitant]

REACTIONS (3)
  - BURNING SENSATION [None]
  - DIPLOPIA [None]
  - PARAESTHESIA [None]
